FAERS Safety Report 4548668-3 (Version None)
Quarter: 2004Q4

REPORT INFORMATION
  Report Type: 
  Country: None (occurrence: None)
  Receive Date: 20041227
  Receipt Date: 20040910
  Transmission Date: 20050328
  Serious: No
  Sender: FDA-Public Use
  Company Number: 04P-163-0273049-00

PATIENT
  Age: 77 Year
  Sex: Female
  Weight: 81.1939 kg

DRUGS (12)
  1. HUMIRA [Suspect]
     Indication: RHEUMATOID ARTHRITIS
     Dosage: 40 MG, 1 IN 1 WK, SUBCUTANEOUS
     Route: 058
     Dates: start: 20040705, end: 20040907
  2. FOLIC ACID [Concomitant]
  3. CLOPIDOGREL BISULFATE [Concomitant]
  4. LOVASTATIN [Concomitant]
  5. ENALAPRIL MALEATE [Concomitant]
  6. LEVOTHYROXINE [Concomitant]
  7. METHOTREXATE [Concomitant]
  8. CYCLOBENZAPRINE HYDROCHLORIDE [Concomitant]
  9. LANSOPRAZOLE [Concomitant]
  10. ACETYLSALICYLIC ACID SRT [Concomitant]
  11. RISEDRONATE SODIUM [Concomitant]
  12. ROFECOXIB [Concomitant]

REACTIONS (3)
  - ARTHRALGIA [None]
  - ORAL CANDIDIASIS [None]
  - PARAESTHESIA [None]
